FAERS Safety Report 20238789 (Version 1)
Quarter: 2021Q4

REPORT INFORMATION
  Report Type: Spontaneous
  Country: US (occurrence: None)
  Receive Date: 20211227
  Receipt Date: 20211227
  Transmission Date: 20220303
  Serious: Yes (Death)
  Sender: FDA-Public Use
  Company Number: None

PATIENT
  Age: 71 Year
  Sex: Male
  Weight: 63 kg

DRUGS (1)
  1. BARICITINIB [Suspect]
     Active Substance: BARICITINIB
     Indication: COVID-19
     Dosage: OTHER QUANTITY : 2-4 MG;?FREQUENCY : DAILY;?
     Route: 048
     Dates: start: 20211107, end: 20211112

REACTIONS (2)
  - Thrombocytopenia [None]
  - Pulmonary embolism [None]

NARRATIVE: CASE EVENT DATE: 20211113
